FAERS Safety Report 10693677 (Version 6)
Quarter: 2015Q3

REPORT INFORMATION
  Report Type: Spontaneous
  Country: US (occurrence: US)
  Receive Date: 20150106
  Receipt Date: 20150821
  Transmission Date: 20151125
  Serious: Yes (Hospitalization, Other)
  Sender: FDA-Public Use
  Company Number: US-BAYER-2015-000334

PATIENT
  Age: 42 Year
  Sex: Female
  Weight: 47.8 kg

DRUGS (1)
  1. MIRENA [Suspect]
     Active Substance: LEVONORGESTREL
     Indication: CONTRACEPTION
     Dosage: 20 MCG/24HR, CONT
     Route: 015
     Dates: start: 20090717, end: 20141028

REACTIONS (19)
  - Peritonitis [Recovering/Resolving]
  - Procedural pain [None]
  - Abdominal pain [Recovering/Resolving]
  - Pain [Recovering/Resolving]
  - Asthenia [Recovering/Resolving]
  - Complication of device removal [None]
  - Device difficult to use [None]
  - Fluid overload [Recovering/Resolving]
  - Gastrointestinal injury [Recovering/Resolving]
  - Nausea [Recovering/Resolving]
  - Device breakage [None]
  - Peritoneal haematoma [Recovering/Resolving]
  - Pyrexia [Recovering/Resolving]
  - Device dislocation [None]
  - Pelvic abscess [Recovering/Resolving]
  - Ileus [Recovering/Resolving]
  - Electrolyte imbalance [Recovering/Resolving]
  - Decreased appetite [Recovering/Resolving]
  - Uterine perforation [None]

NARRATIVE: CASE EVENT DATE: 2014
